FAERS Safety Report 12714175 (Version 1)
Quarter: 2016Q3

REPORT INFORMATION
  Report Type: Spontaneous
  Country: US (occurrence: US)
  Receive Date: 20160905
  Receipt Date: 20160905
  Transmission Date: 20161109
  Serious: No
  Sender: FDA-Public Use
  Company Number: US-PFIZER INC-2016412006

PATIENT
  Sex: Female

DRUGS (5)
  1. SKELAXIN [Suspect]
     Active Substance: METAXALONE
     Indication: FIBROMYALGIA
     Dosage: 1 DF, DAILY
  2. EFFEXOR [Suspect]
     Active Substance: VENLAFAXINE HYDROCHLORIDE
  3. SKELAXIN [Suspect]
     Active Substance: METAXALONE
     Indication: TEMPOROMANDIBULAR JOINT SYNDROME
     Dosage: 3 DF, UNK
  4. SKELAXIN [Suspect]
     Active Substance: METAXALONE
     Indication: MIGRAINE
     Dosage: 4 DF, UNK
  5. SKELAXIN [Suspect]
     Active Substance: METAXALONE
     Indication: MUSCLE TIGHTNESS

REACTIONS (3)
  - Insomnia [Unknown]
  - Pain [Unknown]
  - Migraine [Unknown]
